FAERS Safety Report 15207724 (Version 1)
Quarter: 2018Q3

REPORT INFORMATION
  Report Type: Spontaneous
  Country: US (occurrence: US)
  Receive Date: 20180727
  Receipt Date: 20180727
  Transmission Date: 20181010
  Serious: No
  Sender: FDA-Public Use
  Company Number: US-ALLERGAN-1749960US

PATIENT
  Age: 38 Year
  Sex: Female

DRUGS (2)
  1. ANDRODERM [Suspect]
     Active Substance: TESTOSTERONE
     Indication: INFERTILITY FEMALE
     Dosage: 2 MG, UNKNOWN
     Route: 062
     Dates: start: 20170904
  2. ANDRODERM [Suspect]
     Active Substance: TESTOSTERONE
     Dosage: 2 MG, UNKNOWN
     Route: 062
     Dates: start: 20170904, end: 20170908

REACTIONS (3)
  - Product adhesion issue [Unknown]
  - Off label use [Unknown]
  - Poor quality drug administered [Unknown]

NARRATIVE: CASE EVENT DATE: 20170904
